FAERS Safety Report 6188894-3 (Version None)
Quarter: 2009Q2

REPORT INFORMATION
  Report Type: 
  Country: None (occurrence: None)
  Receive Date: 20090513
  Receipt Date: 20090506
  Transmission Date: 20091009
  Serious: Yes (Other)
  Sender: FDA-Public Use
  Company Number: PHHY2009IT17241

PATIENT
  Age: 8 Year
  Sex: Female

DRUGS (8)
  1. CYCLOSPORINE [Suspect]
     Indication: BONE MARROW TRANSPLANT
  2. CYCLOSPORINE [Suspect]
     Indication: PROPHYLAXIS AGAINST GRAFT VERSUS HOST DISEASE
  3. CYCLOPHOSPHAMIDE [Concomitant]
  4. BUSULFAN [Concomitant]
     Indication: BONE MARROW TRANSPLANT
  5. ANTI-THYMOCYTE GLOBULIN NOS [Concomitant]
  6. METHOTREXATE [Concomitant]
  7. METHYLPREDNISOLONE 4MG TAB [Concomitant]
     Dosage: 0.5 MG/KG/DAY
  8. CLONAZEPAM [Concomitant]

REACTIONS (4)
  - CONVULSION [None]
  - HYPERTENSION [None]
  - NEUROTOXICITY [None]
  - SUBDURAL HAEMORRHAGE [None]
